FAERS Safety Report 8585455-3 (Version None)
Quarter: 2012Q3

REPORT INFORMATION
  Report Type: 
  Country: None (occurrence: None)
  Receive Date: 20120810
  Receipt Date: 20120808
  Transmission Date: 20120928
  Serious: Yes (Hospitalization)
  Sender: FDA-Public Use
  Company Number: CH-BAYER-2012-080227

PATIENT
  Age: 69 Year
  Sex: Male
  Weight: 80 kg

DRUGS (6)
  1. LERCANIDIPINE [Concomitant]
     Dosage: 20 MG, QD
     Route: 048
  2. LITHIUM CARBONATE [Interacting]
     Indication: DEPRESSION
     Dosage: 660 MG, QD
     Route: 048
     Dates: start: 19950101, end: 20120307
  3. ASPIRIN [Suspect]
     Dosage: 100 MG, QD
     Route: 048
  4. LISINOPRIL [Interacting]
     Dosage: UNK UNK, QD
     Route: 048
  5. REMERON [Concomitant]
     Dosage: 30 MG, QD
     Route: 048
     Dates: start: 20120211
  6. ATORVASTATIN CALCIUM [Concomitant]
     Dosage: 40 MG, QD
     Route: 048

REACTIONS (6)
  - MUSCLE FATIGUE [None]
  - HYPERKALAEMIA [None]
  - DRUG LEVEL INCREASED [None]
  - CONFUSIONAL STATE [None]
  - DYSKINESIA [None]
  - RENAL IMPAIRMENT [None]
